APPROVED DRUG PRODUCT: TRIAMCINOLONE ACETONIDE
Active Ingredient: TRIAMCINOLONE ACETONIDE
Strength: 0.025%
Dosage Form/Route: CREAM;TOPICAL
Application: A088094 | Product #001
Applicant: MORTON GROVE PHARMACEUTICALS INC
Approved: Sep 1, 1983 | RLD: No | RS: No | Type: DISCN